FAERS Safety Report 4301635-7 (Version None)
Quarter: 2004Q1

REPORT INFORMATION
  Report Type: 
  Country: None (occurrence: None)
  Receive Date: 20040219
  Receipt Date: 20040130
  Transmission Date: 20041129
  Serious: No
  Sender: FDA-Public Use
  Company Number: ENT 2004-0015

PATIENT

DRUGS (3)
  1. COMTAN [Suspect]
     Dosage: 1600 MG (200 MG, 8 IN 1 D)
     Route: 048
  2. SINEMET [Concomitant]
  3. SINEMET [Concomitant]

REACTIONS (2)
  - DYSPHAGIA [None]
  - SENSATION OF FOREIGN BODY [None]
